FAERS Safety Report 7756445-5 (Version None)
Quarter: 2011Q3

REPORT INFORMATION
  Report Type: 
  Country: None (occurrence: None)
  Receive Date: 20110901
  Receipt Date: 20110819
  Transmission Date: 20111222
  Serious: Yes (Hospitalization, Other)
  Sender: FDA-Public Use
  Company Number: 2011PROUSA00597

PATIENT
  Age: 76 Year
  Sex: Male
  Weight: 67.8 kg

DRUGS (2)
  1. PROVENGE [Suspect]
     Indication: PROSTATE CANCER METASTATIC
     Dosage: 250 ML, SINGLE, INTRAVENOUS
     Route: 042
     Dates: start: 20110630, end: 20110630
  2. PROVENGE [Suspect]
     Dosage: 250ML, SINGLE, INTRAVENOUS
     Route: 042
     Dates: start: 20110801, end: 20110801

REACTIONS (3)
  - METASTASES TO BLADDER [None]
  - HAEMATURIA [None]
  - BLADDER NEOPLASM [None]
